FAERS Safety Report 21468445 (Version 1)
Quarter: 2022Q4

REPORT INFORMATION
  Report Type: Spontaneous
  Country: US (occurrence: None)
  Receive Date: 20221015
  Receipt Date: 20221015
  Transmission Date: 20230113
  Serious: Yes (Hospitalization)
  Sender: FDA-Public Use
  Company Number: None

PATIENT
  Age: 74 Year
  Sex: Female
  Weight: 63.6 kg

DRUGS (1)
  1. TEMOZOLOMIDE [Suspect]
     Active Substance: TEMOZOLOMIDE
     Dates: end: 20170101

REACTIONS (10)
  - General physical health deterioration [None]
  - Nervous system disorder [None]
  - Necrosis [None]
  - Muscle atrophy [None]
  - Asthenia [None]
  - Cognitive disorder [None]
  - Fall [None]
  - Face injury [None]
  - Hydrocephalus [None]
  - Arthralgia [None]

NARRATIVE: CASE EVENT DATE: 20170112
